FAERS Safety Report 6400145-0 (Version None)
Quarter: 2009Q4

REPORT INFORMATION
  Report Type: 
  Country: None (occurrence: None)
  Receive Date: 20091014
  Receipt Date: 20091002
  Transmission Date: 20100525
  Serious: Yes (Life-Threatening, Hospitalization)
  Sender: FDA-Public Use
  Company Number: ES-PFIZER INC-2009256723

PATIENT
  Age: 39 Year

DRUGS (4)
  1. DAUNOBLASTINA [Interacting]
     Indication: ACUTE PROMYELOCYTIC LEUKAEMIA
     Dosage: 1400 MG/DAY
     Route: 042
     Dates: start: 19970513, end: 19970822
  2. DAUNOBLASTINA [Interacting]
     Dosage: 360 MG/DAY
     Route: 042
     Dates: start: 19981016, end: 19981018
  3. TRANEXAMIC ACID [Suspect]
     Indication: ACUTE PROMYELOCYTIC LEUKAEMIA
     Dosage: 90 MG/DAY
     Route: 048
     Dates: start: 19970513, end: 19970527
  4. MITOXANTRONE HYDROCHLORIDE [Interacting]
     Indication: ACUTE PROMYELOCYTIC LEUKAEMIA
     Dosage: UNK
     Route: 055
     Dates: start: 19981001, end: 19981101

REACTIONS (2)
  - CONGESTIVE CARDIOMYOPATHY [None]
  - DRUG INTERACTION [None]
